FAERS Safety Report 9413148 (Version 1)
Quarter: 2013Q3

REPORT INFORMATION
  Report Type: Spontaneous
  Country: US (occurrence: None)
  Receive Date: 20130708
  Receipt Date: 20130708
  Transmission Date: 20140515
  Serious: Yes (Hospitalization)
  Sender: FDA-Public Use
  Company Number: 09-AUR-09717

PATIENT
  Age: 20 Year
  Sex: Female

DRUGS (1)
  1. METFORMIN (METFORMIN) [Suspect]
     Indication: OBESITY

REACTIONS (11)
  - Suicide attempt [None]
  - Nausea [None]
  - Vomiting [None]
  - Abdominal pain upper [None]
  - Metabolic acidosis [None]
  - Leukocytosis [None]
  - Shift to the left [None]
  - Haemodialysis [None]
  - Renal impairment [None]
  - Protein S decreased [None]
  - Coagulation factor VII level decreased [None]
